FAERS Safety Report 22060760 (Version 2)
Quarter: 2023Q1

REPORT INFORMATION
  Report Type: Spontaneous
  Country: CA (occurrence: None)
  Receive Date: 20230303
  Receipt Date: 20230331
  Transmission Date: 20230417
  Serious: Yes (Death, Hospitalization)
  Sender: FDA-Public Use
  Company Number: 2023A052144

PATIENT
  Age: 43 Year
  Sex: Male

DRUGS (13)
  1. BUDESONIDE [Suspect]
     Active Substance: BUDESONIDE
     Indication: Graft versus host disease in gastrointestinal tract
  2. CYCLOSPORINE [Suspect]
     Active Substance: CYCLOSPORINE
     Indication: Graft versus host disease in gastrointestinal tract
     Dosage: 50.0 MG/KG
  3. CYCLOPHOSPHAMIDE [Suspect]
     Active Substance: CYCLOPHOSPHAMIDE
     Indication: Product used for unknown indication
     Dosage: 50.0 MG/KG
  4. THYMOCYTE IMMUNE GLOBULIN NOS [Suspect]
     Active Substance: THYMOCYTE IMMUNE GLOBULIN NOS
     Indication: Prophylaxis against graft versus host disease
  5. CYTOGAM [Suspect]
     Active Substance: HUMAN CYTOMEGALOVIRUS IMMUNE GLOBULIN
     Indication: Encephalitis cytomegalovirus
     Route: 037
  6. CYTOGAM [Suspect]
     Active Substance: HUMAN CYTOMEGALOVIRUS IMMUNE GLOBULIN
     Indication: Encephalitis cytomegalovirus
     Route: 037
  7. FOSCARNET SODIUM [Suspect]
     Active Substance: FOSCARNET SODIUM
     Indication: Encephalitis cytomegalovirus
  8. GANCICLOVIR [Suspect]
     Active Substance: GANCICLOVIR
     Indication: Encephalitis cytomegalovirus
     Route: 042
  9. GANCICLOVIR [Suspect]
     Active Substance: GANCICLOVIR
     Indication: Encephalitis cytomegalovirus
     Route: 042
  10. RITUXIMAB [Suspect]
     Active Substance: RITUXIMAB
     Indication: Epstein-Barr viraemia
  11. VALGANCICLOVIR [Concomitant]
     Active Substance: VALGANCICLOVIR
     Indication: Cytomegalovirus infection
  12. FLUDARABINE [Concomitant]
     Active Substance: FLUDARABINE PHOSPHATE
     Indication: Acute myeloid leukaemia
     Dosage: 30.0 MG/M2
  13. LETERMOVIR [Concomitant]
     Active Substance: LETERMOVIR
     Indication: Antiviral prophylaxis

REACTIONS (11)
  - Acute kidney injury [Fatal]
  - BK virus infection [Fatal]
  - Cystitis haemorrhagic [Fatal]
  - Encephalitis cytomegalovirus [Fatal]
  - Generalised oedema [Fatal]
  - Lung disorder [Fatal]
  - Myelosuppression [Fatal]
  - Nephropathy toxic [Fatal]
  - Pancytopenia [Fatal]
  - Respiratory distress [Fatal]
  - Drug ineffective [Fatal]
